FAERS Safety Report 8761396 (Version 1)
Quarter: 2012Q4

REPORT INFORMATION
  Report Type: 
  Country: DE (occurrence: DE)
  Receive Date: 20120829
  Receipt Date: 20120829
  Transmission Date: 20130627
  Serious: Yes (Hospitalization)
  Sender: FDA-Public Use
  Company Number: DE-PFIZER INC-2012207383

PATIENT
  Age: 67 Year
  Sex: Male
  Weight: 95.3 kg

DRUGS (8)
  1. GENOTROPIN [Suspect]
     Indication: HYPOPITUITARISM
     Dosage: 0.2 mg, 7injection/week
     Route: 058
     Dates: start: 20040825
  2. EUTHYROX [Concomitant]
     Indication: HYPOTHYROIDISM
     Dosage: UNK
     Dates: start: 19981015
  3. DESMOPRESSIN ACETATE [Concomitant]
     Indication: BLOOD ANTIDIURETIC HORMONE DECREASED
     Dosage: UNK
     Dates: start: 19981015
  4. TESTOVIRON [Concomitant]
     Indication: ANDROGEN DEFICIENCY
     Dosage: UNK
     Dates: start: 19990115
  5. FLUDROCORTISONE [Concomitant]
     Indication: HYPOTONIA
     Dosage: UNK
     Dates: start: 19990701
  6. DHEA [Concomitant]
     Indication: DEHYDROEPIANDROSTERONE DECREASED
     Dosage: UNK
     Dates: start: 20020722
  7. TESTOSTERONE [Concomitant]
     Indication: HYPOGONADISM
     Dosage: UNK
     Dates: start: 20041018
  8. HYDROCORTISONE [Concomitant]
     Indication: BLOOD CORTICOTROPHIN DECREASED
     Dosage: UNK
     Dates: start: 19981015

REACTIONS (1)
  - Sleep disorder [Unknown]
